FAERS Safety Report 6987370-5 (Version None)
Quarter: 2010Q3

REPORT INFORMATION
  Report Type: 
  Country: None (occurrence: None)
  Receive Date: 20100913
  Receipt Date: 20100827
  Transmission Date: 20110219
  Serious: Yes (Hospitalization)
  Sender: FDA-Public Use
  Company Number: TCI2010A03334

PATIENT
  Age: 66 Year
  Sex: Male

DRUGS (6)
  1. ACTOS [Suspect]
     Indication: TYPE 2 DIABETES MELLITUS
     Dosage: 30 MG (30 MG, 1-2) MP-513 OR PLACEBO
     Route: 048
     Dates: start: 20080201
  2. MP-513 (CODE NOT BROKEN) (ORAL ANTIDIABETICS) OR PLACEBO [Suspect]
     Indication: TYPE 2 DIABETES MELLITUS
     Dosage: 1 IN 1 DAY
     Route: 048
     Dates: start: 20100227, end: 20100521
  3. MP-513 (ORAL ANTIDIABETICS) [Suspect]
     Indication: TYPE 2 DIABETES MELLITUS
     Dosage: 20 MG (20 MG, 1 IN 1 D)
     Route: 048
     Dates: start: 20100522
  4. LIPITOR [Concomitant]
  5. FLIVAS OD (NAFTOPIDIL) [Concomitant]
  6. UBTEC (DISTIGMINE BROMIDE) [Concomitant]

REACTIONS (1)
  - COLONIC POLYP [None]
